FAERS Safety Report 15734386 (Version 1)
Quarter: 2018Q4

REPORT INFORMATION
  Report Type: Spontaneous
  Country: US (occurrence: US)
  Receive Date: 20181203
  Receipt Date: 20181203
  Transmission Date: 20190205
  Serious: Yes (Other)
  Sender: FDA-Public Use
  Company Number: None

PATIENT
  Age: 42 Year
  Sex: Female
  Weight: 58.5 kg

DRUGS (1)
  1. 0.9% SODIUM CHLORIDE INJECTION USP 500ML BAG [Suspect]
     Active Substance: SODIUM CHLORIDE
     Indication: DEHYDRATION
     Dosage: ?          OTHER FREQUENCY:1 TO 2 TIMES/WEEK;?
     Route: 041
     Dates: start: 20181116, end: 20181119

REACTIONS (4)
  - Chest discomfort [None]
  - Dyspnoea [None]
  - Burning sensation [None]
  - Infusion related reaction [None]
